FAERS Safety Report 10584842 (Version 1)
Quarter: 2014Q4

REPORT INFORMATION
  Report Type: Spontaneous
  Country: CA (occurrence: CA)
  Receive Date: 20141114
  Receipt Date: 20141114
  Transmission Date: 20150529
  Serious: Yes (Other)
  Sender: FDA-Public Use
  Company Number: CA-BAYER-2014-163339

PATIENT
  Age: 41 Year
  Sex: Female

DRUGS (1)
  1. CIPRO XL [Suspect]
     Active Substance: CIPROFLOXACIN\CIPROFLOXACIN HYDROCHLORIDE
     Dosage: 500 MG, QD
     Route: 048

REACTIONS (2)
  - Paranoia [Recovered/Resolved]
  - Substance-induced psychotic disorder [Recovered/Resolved]
